FAERS Safety Report 6178246-4 (Version None)
Quarter: 2009Q2

REPORT INFORMATION
  Report Type: 
  Country: None (occurrence: None)
  Receive Date: 20090504
  Receipt Date: 20090423
  Transmission Date: 20091009
  Serious: Yes (Death)
  Sender: FDA-Public Use
  Company Number: A0775696A

PATIENT
  Sex: Male
  Weight: 68 kg

DRUGS (14)
  1. SERETIDE [Suspect]
     Dosage: 1PUFF TWICE PER DAY
     Route: 055
     Dates: start: 20080901, end: 20090129
  2. MONOCORDIL [Concomitant]
     Dosage: 2MG TWICE PER DAY
     Dates: start: 19910101, end: 20090129
  3. CILOSTAZOL [Concomitant]
     Dosage: 100MG TWICE PER DAY
     Dates: start: 20010101, end: 20090129
  4. ENALAPRIL [Concomitant]
     Dosage: 10MG PER DAY
     Dates: start: 20020101, end: 20090129
  5. CHLORTHALIDONE [Concomitant]
     Dosage: 25MG PER DAY
     Dates: start: 20020101, end: 20090129
  6. LANTUS [Concomitant]
     Dates: start: 20030101, end: 20090129
  7. METFORMIN HCL [Concomitant]
     Dosage: 500MG TWICE PER DAY
     Dates: start: 20040101, end: 20090129
  8. LOVASTATIN [Concomitant]
     Dosage: 25MG PER DAY
     Dates: start: 20040101, end: 20090129
  9. ASPIRIN [Concomitant]
     Dosage: 150MG PER DAY
     Dates: start: 20040101, end: 20090129
  10. TEGRETOL [Concomitant]
     Dosage: 200MG TWICE PER DAY
     Dates: start: 20010101, end: 20090129
  11. TRAMADOL HCL [Concomitant]
     Dates: start: 20081201, end: 20081230
  12. MORPHINE [Concomitant]
     Dosage: 20MG TWICE PER DAY
     Dates: start: 20090101, end: 20090129
  13. TIOTROPIUM [Concomitant]
  14. MOTILIUM [Concomitant]

REACTIONS (5)
  - CONFUSIONAL STATE [None]
  - DISEASE PROGRESSION [None]
  - LUNG NEOPLASM MALIGNANT [None]
  - METASTASES TO CENTRAL NERVOUS SYSTEM [None]
  - MOVEMENT DISORDER [None]
